FAERS Safety Report 9869012 (Version 3)
Quarter: 2014Q1

REPORT INFORMATION
  Report Type: Spontaneous
  Country: DE (occurrence: DE)
  Receive Date: 20140205
  Receipt Date: 20140218
  Transmission Date: 20141002
  Serious: Yes (Hospitalization)
  Sender: FDA-Public Use
  Company Number: DE-ROCHE-1313438

PATIENT
  Age: 62 Year
  Sex: Female
  Weight: 95 kg

DRUGS (7)
  1. PERJETA [Suspect]
     Indication: BREAST CANCER METASTATIC
     Dosage: INTIAL DOSE
     Route: 042
     Dates: start: 20130923, end: 20130923
  2. PERJETA [Suspect]
     Dosage: 1 PER 3 WEEKS
     Route: 042
     Dates: end: 20131104
  3. HERCEPTIN [Suspect]
     Indication: BREAST CANCER METASTATIC
     Dosage: INITIAL DOSE
     Route: 042
     Dates: start: 20130923, end: 20130923
  4. HERCEPTIN [Suspect]
     Route: 042
     Dates: end: 20131104
  5. GRANISETRON [Concomitant]
     Indication: PROPHYLAXIS OF NAUSEA AND VOMITING
     Route: 042
     Dates: start: 20130923, end: 20131104
  6. DEXAMETHASON [Concomitant]
     Indication: ALLERGY PROPHYLAXIS
     Route: 048
     Dates: start: 20130923, end: 20131104
  7. DEXAMETHASON [Concomitant]
     Indication: PROPHYLAXIS OF NAUSEA AND VOMITING
     Route: 042
     Dates: start: 20130923, end: 20131104

REACTIONS (7)
  - Dyspnoea [Recovered/Resolved]
  - Tremor [Recovered/Resolved]
  - Hypertension [Recovered/Resolved]
  - Panic attack [Recovered/Resolved]
  - Hot flush [Recovered/Resolved]
  - Dermatitis exfoliative [Recovered/Resolved]
  - Hypersensitivity [Recovered/Resolved]
